FAERS Safety Report 15982167 (Version 2)
Quarter: 2019Q1

REPORT INFORMATION
  Report Type: Spontaneous
  Country: IT (occurrence: IT)
  Receive Date: 20190219
  Receipt Date: 20190312
  Transmission Date: 20190418
  Serious: Yes (Other)
  Sender: FDA-Public Use
  Company Number: IT-PFIZER INC-2019070201

PATIENT
  Age: 57 Year
  Sex: Male

DRUGS (2)
  1. PANTOPRAZOLE [Concomitant]
     Active Substance: PANTOPRAZOLE
  2. SUTENT [Suspect]
     Active Substance: SUNITINIB MALATE
     Indication: RENAL CANCER
     Dosage: 37500 UG, 1X/DAY
     Route: 048
     Dates: start: 20180101, end: 20180202

REACTIONS (3)
  - Cholestasis [Recovering/Resolving]
  - Rash pruritic [Recovering/Resolving]
  - Urine analysis abnormal [Recovering/Resolving]

NARRATIVE: CASE EVENT DATE: 20180202
